FAERS Safety Report 5195087-5 (Version None)
Quarter: 2006Q4

REPORT INFORMATION
  Report Type: 
  Country: None (occurrence: None)
  Receive Date: 20061229
  Receipt Date: 20061215
  Transmission Date: 20070319
  Serious: Yes (Hospitalization)
  Sender: FDA-Public Use
  Company Number: US-SHR-US-2006-039508

PATIENT
  Age: 26 Year
  Sex: Female

DRUGS (1)
  1. BETASERON [Suspect]
     Dosage: 8 MIU, EVERY 2D
     Route: 058
     Dates: start: 20061030

REACTIONS (2)
  - HYPOAESTHESIA [None]
  - VISUAL ACUITY REDUCED [None]
